FAERS Safety Report 12386875 (Version 3)
Quarter: 2016Q3

REPORT INFORMATION
  Report Type: Spontaneous
  Country: GB (occurrence: GB)
  Receive Date: 20160519
  Receipt Date: 20160817
  Transmission Date: 20161109
  Serious: Yes (Other)
  Sender: FDA-Public Use
  Company Number: GB-JNJFOC-20160516166

PATIENT
  Age: 59 Year
  Sex: Female

DRUGS (1)
  1. SIMPONI [Suspect]
     Active Substance: GOLIMUMAB
     Indication: PRODUCT USED FOR UNKNOWN INDICATION
     Route: 058

REACTIONS (4)
  - Chronic obstructive pulmonary disease [Unknown]
  - Oral mucosal exfoliation [Unknown]
  - Cellulitis [Unknown]
  - Fatigue [Unknown]

NARRATIVE: CASE EVENT DATE: 20160511
